FAERS Safety Report 21821891 (Version 1)
Quarter: 2023Q1

REPORT INFORMATION
  Report Type: Spontaneous
  Country: SI (occurrence: SI)
  Receive Date: 20230105
  Receipt Date: 20230105
  Transmission Date: 20230417
  Serious: Yes (Hospitalization)
  Sender: FDA-Public Use
  Company Number: SI-STRIDES ARCOLAB LIMITED-2023SP000267

PATIENT
  Age: 45 Year
  Sex: Male

DRUGS (2)
  1. OXYCODONE [Suspect]
     Active Substance: OXYCODONE
     Indication: Product used for unknown indication
     Dosage: UNK, SINGLE (M30 TABLETS)
     Route: 048
  2. SERTRALINE [Concomitant]
     Active Substance: SERTRALINE HYDROCHLORIDE
     Indication: Depression
     Dosage: 25 MILLIGRAM PER DAY
     Route: 065

REACTIONS (7)
  - Hyperreflexia [Unknown]
  - Clonus [Unknown]
  - Tremor [Unknown]
  - Hyperhidrosis [Unknown]
  - Confusional state [Unknown]
  - Agitation [Unknown]
  - Myalgia [Unknown]
